FAERS Safety Report 21256683 (Version 3)
Quarter: 2023Q1

REPORT INFORMATION
  Report Type: Spontaneous
  Country: CA (occurrence: CA)
  Receive Date: 20220826
  Receipt Date: 20230321
  Transmission Date: 20230417
  Serious: Yes (Other)
  Sender: FDA-Public Use
  Company Number: CA-SAMSUNG BIOEPIS-SB-2022-21058

PATIENT
  Age: 24 Year
  Sex: Male
  Weight: 75 kg

DRUGS (7)
  1. INFLIXIMAB [Suspect]
     Active Substance: INFLIXIMAB
     Indication: Colitis ulcerative
     Route: 042
  2. INFLIXIMAB [Suspect]
     Active Substance: INFLIXIMAB
     Route: 042
  3. INFLIXIMAB [Suspect]
     Active Substance: INFLIXIMAB
     Route: 042
  4. INSULIN ASPART [Concomitant]
     Active Substance: INSULIN ASPART
     Indication: Product used for unknown indication
     Route: 065
  5. LANTUS [Concomitant]
     Active Substance: INSULIN GLARGINE
     Indication: Product used for unknown indication
     Dosage: SOLUTION SUBCUTANEOUS
     Route: 065
  6. RANITIDINE [Concomitant]
     Active Substance: RANITIDINE
     Indication: Product used for unknown indication
     Route: 048
  7. CANNABIDIOL [Concomitant]
     Active Substance: CANNABIDIOL
     Indication: Product used for unknown indication
     Dosage: UNKNOWN
     Route: 065

REACTIONS (7)
  - Malaise [Not Recovered/Not Resolved]
  - Vomiting [Not Recovered/Not Resolved]
  - Impaired gastric emptying [Not Recovered/Not Resolved]
  - Weight decreased [Not Recovered/Not Resolved]
  - Illness [Not Recovered/Not Resolved]
  - Weight increased [Not Recovered/Not Resolved]
  - Inappropriate schedule of product administration [Not Recovered/Not Resolved]
